FAERS Safety Report 6142837-7 (Version None)
Quarter: 2009Q2

REPORT INFORMATION
  Report Type: 
  Country: None (occurrence: None)
  Receive Date: 20090403
  Receipt Date: 20070823
  Transmission Date: 20091009
  Serious: Yes (Hospitalization, Other)
  Sender: FDA-Public Use
  Company Number: US-ASTRAZENECA-2006UW10820

PATIENT
  Age: 13934 Day
  Sex: Male
  Weight: 79.4 kg

DRUGS (24)
  1. SEROQUEL [Suspect]
     Indication: BIPOLAR DISORDER
     Route: 048
     Dates: start: 20040324, end: 20060301
  2. SEROQUEL [Suspect]
     Indication: DEPRESSION
     Route: 048
     Dates: start: 20040324, end: 20060301
  3. SEROQUEL [Suspect]
     Dosage: 25MG-200MG
     Route: 048
  4. SEROQUEL [Suspect]
     Dosage: 25MG-200MG
     Route: 048
  5. ZOLOFT [Concomitant]
  6. ULTRACET [Concomitant]
  7. ZETIA [Concomitant]
  8. LANTUS [Concomitant]
  9. ADVAIR HFA [Concomitant]
  10. TRICOR [Concomitant]
  11. BEXTRA [Concomitant]
  12. NEXIUM [Concomitant]
  13. HUMALOG [Concomitant]
  14. CRESTOR [Concomitant]
  15. LIPITOR [Concomitant]
  16. MIRAPEX [Concomitant]
  17. AVANDIA [Concomitant]
  18. LISINOPRIL [Concomitant]
  19. ALBUTEROL SULFATE [Concomitant]
  20. GABAPENTIN [Concomitant]
  21. GLYBURIDE [Concomitant]
  22. METFORMIN HCL [Concomitant]
  23. GLIPIZIDE [Concomitant]
  24. COMBIVENT [Concomitant]

REACTIONS (19)
  - ANOREXIA [None]
  - BORDERLINE GLAUCOMA [None]
  - CARPAL TUNNEL SYNDROME [None]
  - CHRONIC OBSTRUCTIVE PULMONARY DISEASE [None]
  - CONTUSION [None]
  - CUBITAL TUNNEL SYNDROME [None]
  - DIABETES MELLITUS [None]
  - DIABETIC KETOACIDOSIS [None]
  - DIABETIC RETINOPATHY [None]
  - HYPONATRAEMIA [None]
  - HYPOVOLAEMIA [None]
  - INJURY [None]
  - INTERVERTEBRAL DISC DEGENERATION [None]
  - MUSCLE SPASMS [None]
  - MUSCULOSKELETAL PAIN [None]
  - PAIN IN EXTREMITY [None]
  - ROTATOR CUFF SYNDROME [None]
  - SINUSITIS [None]
  - WINGED SCAPULA [None]
